FAERS Safety Report 5793670-7 (Version None)
Quarter: 2008Q2

REPORT INFORMATION
  Report Type: 
  Country: None (occurrence: None)
  Receive Date: 20080627
  Receipt Date: 20080617
  Transmission Date: 20081010
  Serious: Yes (Hospitalization, Other)
  Sender: FDA-Public Use
  Company Number: US-ABBOTT-08P-163-0458137-00

PATIENT
  Sex: Female
  Weight: 69.916 kg

DRUGS (7)
  1. SYNTHROID [Suspect]
     Indication: HYPOTHYROIDISM
     Route: 048
     Dates: start: 19880101
  2. GLUCOSAMINE CONDRITON [Concomitant]
     Indication: SUPPLEMENTATION THERAPY
     Dosage: 2000MG DAILY, 1000MG TWICE IN ONE DAY
     Route: 048
     Dates: start: 19980101
  3. ERGOCALCIFEROL [Concomitant]
     Indication: VITAMIN SUPPLEMENTATION
     Dosage: 800MG DAILY DOSE, 400MG TWICE IN ONE DAY
     Route: 048
     Dates: start: 19980101
  4. MAGNESIUM/CALCIUM [Concomitant]
     Indication: MINERAL SUPPLEMENTATION
     Route: 048
     Dates: start: 19980101
  5. MAGNESIUM/CALCIUM [Concomitant]
  6. CYFAMED [Concomitant]
     Indication: SUPPLEMENTATION THERAPY
     Dosage: TWO PILLS DAILY
     Route: 048
     Dates: start: 20030101
  7. VITIS VINIFERA SEED [Concomitant]
     Indication: SUPPLEMENTATION THERAPY
     Route: 048
     Dates: start: 19980101

REACTIONS (7)
  - CATARACT [None]
  - KNEE ARTHROPLASTY [None]
  - MUSCULOSKELETAL PAIN [None]
  - TENDON RUPTURE [None]
  - TOOTH REPAIR [None]
  - UTERINE CANCER [None]
  - WEIGHT INCREASED [None]
